FAERS Safety Report 4407473-9 (Version None)
Quarter: 2004Q3

REPORT INFORMATION
  Report Type: 
  Country: None (occurrence: None)
  Receive Date: 20040721
  Receipt Date: 20040708
  Transmission Date: 20050211
  Serious: Yes (Hospitalization)
  Sender: FDA-Public Use
  Company Number: 2004044686

PATIENT
  Age: 75 Year
  Sex: Female

DRUGS (7)
  1. TOTALIP (ATORVASTATIN) [Suspect]
     Indication: DYSLIPIDAEMIA
     Dosage: 10 MG (10 MG, 1 IN 1 D), ORAL
     Route: 048
     Dates: start: 20040612, end: 20040628
  2. INDAPAMIDE [Suspect]
     Indication: HYPERTENSION
     Dosage: 2.5 MG (2.5 MG, 1 IN 1 D), ORAL
     Route: 048
     Dates: start: 20040612, end: 20040628
  3. LANSOPRAZOLE [Suspect]
     Indication: GASTRIC DISORDER
     Dosage: 15 MG (15 MG, 1 IN 1 D), ORAL
     Route: 048
     Dates: start: 20040611, end: 20040628
  4. NADROPARIN CALCIUM (CANDROPARIN CALCIUM) [Suspect]
     Indication: DEEP VENOUS THROMBOSIS PROPHYLAXIS
     Dosage: 0.4 ML (0.4 ML, 1 IN 1 D), SUBCUTANEOUS
     Route: 058
     Dates: start: 20040612, end: 20040628
  5. ACETYLSALICYLIC ACID (ACETYLSALICYLIC CID) [Concomitant]
  6. PERINDOPRIL ERBUMINE (PERINDORPIL ERBUMINE) [Concomitant]
  7. VERAPAMIL HCL [Concomitant]

REACTIONS (5)
  - BLOOD POTASSIUM DECREASED [None]
  - ERYTHEMA [None]
  - NEUTROPHIL COUNT INCREASED [None]
  - NEUTROPHIL PERCENTAGE INCREASED [None]
  - SKIN DISORDER [None]
